FAERS Safety Report 7073695-4 (Version None)
Quarter: 2010Q4

REPORT INFORMATION
  Report Type: 
  Country: None (occurrence: None)
  Receive Date: 20101029
  Receipt Date: 20100802
  Transmission Date: 20110411
  Serious: No
  Sender: FDA-Public Use
  Company Number: A0873445A

PATIENT
  Age: 66 Year
  Sex: Female

DRUGS (7)
  1. ADVAIR DISKUS 100/50 [Suspect]
     Indication: CHRONIC OBSTRUCTIVE PULMONARY DISEASE
     Dosage: 1PUFF TWICE PER DAY
     Route: 055
     Dates: start: 20040101, end: 20100729
  2. LORAZEPAM [Concomitant]
  3. SPIRIVA [Concomitant]
  4. LEVOXYL [Concomitant]
  5. FLEXERIL [Concomitant]
  6. SINGULAIR [Concomitant]
  7. OXYGEN [Concomitant]

REACTIONS (6)
  - ECZEMA [None]
  - OROPHARYNGEAL PAIN [None]
  - PRURITUS [None]
  - RASH [None]
  - THROAT IRRITATION [None]
  - URTICARIA [None]
